FAERS Safety Report 10205014 (Version 1)
Quarter: 2014Q2

REPORT INFORMATION
  Report Type: Spontaneous
  Country: US (occurrence: None)
  Receive Date: 20140527
  Receipt Date: 20140527
  Transmission Date: 20141212
  Serious: Yes (Death)
  Sender: FDA-Public Use
  Company Number: US-ACS-000019

PATIENT
  Age: 7 Year
  Sex: Male

DRUGS (7)
  1. CEFTRIAXONE [Suspect]
     Indication: PRODUCT USED FOR UNKNOWN INDICATION
  2. FENRETINIDE [Suspect]
     Dosage: 1 X 1110 MG/M EVERY 1 DAY(S) ASSIGNED
  3. ACETAMINOPHEN [Suspect]
     Indication: PRODUCT USED FOR UNKNOWN INDICATION
  4. MONTELUKAST [Concomitant]
  5. ONDANSETRON [Concomitant]
  6. IBUPROFEN [Concomitant]
  7. DOPAMINE [Concomitant]

REACTIONS (15)
  - Drug interaction [None]
  - Pyrexia [None]
  - Acute hepatic failure [None]
  - Nephropathy toxic [None]
  - Cardiotoxicity [None]
  - Coagulopathy [None]
  - Haemorrhage [None]
  - Toxicity to various agents [None]
  - Hepatic necrosis [None]
  - Hepatic haemorrhage [None]
  - Biliary tract disorder [None]
  - Cholestasis [None]
  - Liver injury [None]
  - Multi-organ failure [None]
  - Hepatotoxicity [None]
